FAERS Safety Report 7353100-0 (Version None)
Quarter: 2011Q1

REPORT INFORMATION
  Report Type: 
  Country: None (occurrence: None)
  Receive Date: 20110315
  Receipt Date: 20110304
  Transmission Date: 20110831
  Serious: Yes (Other)
  Sender: FDA-Public Use
  Company Number: AT-JNJFOC-20110302272

PATIENT
  Sex: Male

DRUGS (3)
  1. RISPERDAL CONSTA [Suspect]
     Indication: PERSONALITY DISORDER
     Route: 030
  2. RISPERDAL CONSTA [Suspect]
     Indication: PSYCHOTIC DISORDER
     Route: 030
  3. RISPERDAL CONSTA [Suspect]
     Indication: DRUG DEPENDENCE
     Route: 030

REACTIONS (4)
  - DYSKINESIA [None]
  - DRUG LEVEL INCREASED [None]
  - OFF LABEL USE [None]
  - OCULOGYRIC CRISIS [None]
